FAERS Safety Report 13966609 (Version 1)
Quarter: 2017Q3

REPORT INFORMATION
  Report Type: Other
  Country: GB (occurrence: GB)
  Receive Date: 20170914
  Receipt Date: 20170914
  Transmission Date: 20171128
  Serious: Yes (Other)
  Sender: FDA-Public Use
  Company Number: GB-MACLEODS PHARMACEUTICALS US LTD-MAC2017005937

PATIENT

DRUGS (1)
  1. ESCITALOPRAM [Suspect]
     Active Substance: ESCITALOPRAM OXALATE
     Indication: ANXIETY
     Dosage: 10 MG, UNK
     Route: 048
     Dates: start: 20170717, end: 20170817

REACTIONS (4)
  - Haemorrhoids [Unknown]
  - Vulvovaginal discomfort [Unknown]
  - Headache [Not Recovered/Not Resolved]
  - Constipation [Unknown]

NARRATIVE: CASE EVENT DATE: 20170717
